FAERS Safety Report 4362725-6 (Version None)
Quarter: 2004Q2

REPORT INFORMATION
  Report Type: 
  Country: None (occurrence: None)
  Receive Date: 20040520
  Receipt Date: 20031210
  Transmission Date: 20050107
  Serious: Yes (Hospitalization)
  Sender: FDA-Public Use
  Company Number: PHBS2003JP13963

PATIENT
  Age: 30 Year
  Sex: Male
  Weight: 64 kg

DRUGS (12)
  1. SANDIMMUNE [Suspect]
     Indication: PSORIASIS
     Dosage: UNK, UNK
     Route: 048
     Dates: start: 19950926, end: 19951018
  2. SANDIMMUNE [Suspect]
     Dosage: 200 MG/DAY
     Route: 048
     Dates: start: 19980414, end: 20001023
  3. ADALAT [Concomitant]
     Dosage: 10 - 20 MG/DAY
     Route: 048
     Dates: start: 19980804, end: 20020820
  4. NEORAL [Suspect]
     Indication: PSORIASIS
     Dosage: 100 - 150 MG/DAY
     Route: 048
     Dates: start: 20001024, end: 20010628
  5. MEVALOTIN [Concomitant]
     Dosage: 10 MG/DAY
     Route: 048
     Dates: start: 20000704, end: 20001120
  6. CHOLEBRINE [Concomitant]
     Dosage: 500 MG/DAY
     Route: 048
     Dates: start: 20000919, end: 20010219
  7. ZYLORIC ^FAES^ [Concomitant]
     Dosage: 100 MG/DAY
     Route: 048
     Dates: start: 20000912, end: 20010918
  8. DOVONEX [Concomitant]
     Route: 061
     Dates: start: 20000704
  9. LIPITOR [Concomitant]
     Route: 065
     Dates: start: 20001121
  10. ETRETINATE [Concomitant]
  11. MINOCYCLINE HCL [Concomitant]
  12. STEROIDS NOS [Concomitant]

REACTIONS (10)
  - BIOPSY KIDNEY ABNORMAL [None]
  - BLOOD CREATININE INCREASED [None]
  - CREATININE RENAL CLEARANCE DECREASED [None]
  - GLOMERULAR FILTRATION RATE ABNORMAL [None]
  - HEADACHE [None]
  - NECROSIS OF ARTERY [None]
  - NEPHROPATHY TOXIC [None]
  - RENAL ATROPHY [None]
  - RENAL HYPERTENSION [None]
  - RENAL INTERSTITIAL FIBROSIS [None]
